FAERS Safety Report 10818367 (Version 1)
Quarter: 2015Q1

REPORT INFORMATION
  Report Type: Spontaneous
  Country: US (occurrence: US)
  Receive Date: 20150218
  Receipt Date: 20150218
  Transmission Date: 20150721
  Serious: Yes (Other)
  Sender: FDA-Public Use
  Company Number: US-ELI_LILLY_AND_COMPANY-US201502002857

PATIENT
  Age: 23 Year
  Sex: Female
  Weight: 64.85 kg

DRUGS (5)
  1. LAMOTRIGIN [Concomitant]
     Active Substance: LAMOTRIGINE
     Indication: PRODUCT USED FOR UNKNOWN INDICATION
     Dosage: 200 MG, QD
     Route: 065
     Dates: start: 201006
  2. VARENICLINE [Suspect]
     Active Substance: VARENICLINE
     Indication: SMOKING CESSATION THERAPY
     Dosage: 1 DF, BID
     Route: 048
     Dates: start: 20110524, end: 20110606
  3. CYMBALTA [Suspect]
     Active Substance: DULOXETINE HYDROCHLORIDE
     Indication: PRODUCT USED FOR UNKNOWN INDICATION
     Dosage: 60 MG, QD
     Route: 065
     Dates: start: 20020206, end: 20110601
  4. CYMBALTA [Suspect]
     Active Substance: DULOXETINE HYDROCHLORIDE
     Dosage: 90 MG, QD
     Dates: start: 20110602, end: 20110607
  5. CYMBALTA [Suspect]
     Active Substance: DULOXETINE HYDROCHLORIDE
     Dosage: 60 MG, QD
     Dates: start: 20110608

REACTIONS (5)
  - Blood glucose decreased [Unknown]
  - Pallor [Recovered/Resolved]
  - Limb discomfort [Recovered/Resolved]
  - Tremor [Recovered/Resolved]
  - Somnolence [Recovered/Resolved]

NARRATIVE: CASE EVENT DATE: 20110607
